FAERS Safety Report 11649849 (Version 2)
Quarter: 2015Q4

REPORT INFORMATION
  Report Type: Report from Study
  Country: US (occurrence: US)
  Receive Date: 20151021
  Receipt Date: 20151211
  Transmission Date: 20160304
  Serious: Yes (Hospitalization, Other)
  Sender: FDA-Public Use
  Company Number: US-BAXALTA-2015BLT002268

PATIENT
  Age: 66 Year
  Sex: Female

DRUGS (2)
  1. GAMMAGARD LIQUID [Suspect]
     Active Substance: HUMAN IMMUNOGLOBULIN G
     Dosage: 50 G, 1X A MONTH
     Route: 058
     Dates: start: 2015
  2. GAMMAGARD LIQUID [Suspect]
     Active Substance: HUMAN IMMUNOGLOBULIN G
     Indication: PRIMARY IMMUNODEFICIENCY SYNDROME
     Dosage: 10 G, 1X A WEEK
     Route: 058

REACTIONS (6)
  - Lung infection [Unknown]
  - Adverse drug reaction [Unknown]
  - Lung infection [Recovering/Resolving]
  - Red man syndrome [Unknown]
  - Streptococcal infection [Recovering/Resolving]
  - Iron deficiency [Recovering/Resolving]

NARRATIVE: CASE EVENT DATE: 201510
